FAERS Safety Report 16791034 (Version 4)
Quarter: 2019Q3

REPORT INFORMATION
  Report Type: Spontaneous
  Country: US (occurrence: US)
  Receive Date: 20190910
  Receipt Date: 20190930
  Transmission Date: 20191005
  Serious: Yes (Other)
  Sender: FDA-Public Use
  Company Number: US-PFIZER INC-2019386861

PATIENT
  Age: 44 Year
  Sex: Female
  Weight: 84.81 kg

DRUGS (5)
  1. CHANTIX [Suspect]
     Active Substance: VARENICLINE TARTRATE
     Dosage: 0.5 MG, 1X/DAY (ON DAYS 1-2)
     Dates: start: 20190909
  2. CHANTIX [Suspect]
     Active Substance: VARENICLINE TARTRATE
     Dosage: 0.5 MG, 2X/DAY (ON DAYS 4-7)
  3. CHANTIX [Suspect]
     Active Substance: VARENICLINE TARTRATE
     Dosage: 1 MG TWICE DAILY FOR A TOTAL OF 12 WEEKS
  4. CHANTIX [Suspect]
     Active Substance: VARENICLINE TARTRATE
     Dosage: 1 MG, DAILY (FOR A TOTAL OF 12 WEEKS)
  5. CHANTIX [Suspect]
     Active Substance: VARENICLINE TARTRATE
     Dosage: 1 G, UNK [QUANTITY FOR 90DAYS: 52 DAYS]

REACTIONS (4)
  - Pulmonary oedema [Unknown]
  - Product prescribing error [Unknown]
  - Pneumonia [Unknown]
  - Wrong strength [Unknown]
